FAERS Safety Report 4462004-2 (Version None)
Quarter: 2004Q3

REPORT INFORMATION
  Report Type: 
  Country: None (occurrence: None)
  Receive Date: 20040924
  Receipt Date: 20040915
  Transmission Date: 20050211
  Serious: Yes (Hospitalization)
  Sender: FDA-Public Use
  Company Number: 2004-09-0354

PATIENT
  Age: 66 Year
  Sex: Female

DRUGS (5)
  1. TEMODAL [Suspect]
     Indication: GLIOBLASTOMA
     Dosage: 120 MG QD ORAL
     Route: 048
     Dates: start: 20040729, end: 20040905
  2. BOSWELLIA SERRATA [Suspect]
     Indication: GLIOBLASTOMA
     Dosage: ORAL
     Route: 048
     Dates: start: 20040729, end: 20040905
  3. ACETYLSALICYLIC ACID SRT [Concomitant]
  4. .. [Concomitant]
  5. ZOFRAN (ONDANSETRON) TABLETS [Concomitant]

REACTIONS (1)
  - URTICARIA [None]
